FAERS Safety Report 9613589 (Version 2)
Quarter: 2013Q4

REPORT INFORMATION
  Report Type: Spontaneous
  Country: GB (occurrence: None)
  Receive Date: 20131008
  Receipt Date: 20131015
  Transmission Date: 20140711
  Serious: Yes (Other)
  Sender: FDA-Public Use
  Company Number: KAD201309-001285

PATIENT
  Age: 46 Year
  Sex: Female

DRUGS (3)
  1. RIBAVIRIN [Suspect]
     Indication: HEPATITIS C
     Route: 048
     Dates: start: 20121203
  2. PEGINTERFERON ALFA-2B [Suspect]
     Indication: HEPATITIS C
     Dosage: INJECTION, SUBCUTANEOUS
     Route: 058
     Dates: start: 20121203
  3. TELAPREVIR [Suspect]
     Indication: HEPATITIS C
     Route: 048
     Dates: start: 20121203, end: 20130224

REACTIONS (6)
  - Oral mucosal blistering [None]
  - Dry skin [None]
  - Erythema [None]
  - Haemoglobin decreased [None]
  - Oedema peripheral [None]
  - Rash [None]
